FAERS Safety Report 5010322-1 (Version None)
Quarter: 2006Q2

REPORT INFORMATION
  Report Type: 
  Country: None (occurrence: None)
  Receive Date: 20060404
  Receipt Date: 20051121
  Transmission Date: 20061013
  Serious: Yes (Other)
  Sender: FDA-Public Use
  Company Number: USA0511112794

PATIENT
  Age: 57 Year
  Sex: Male

DRUGS (1)
  1. CYMBALTA [Suspect]
     Indication: DIABETIC NEUROPATHY
     Dosage: 60 MG, ORAL
     Route: 048
     Dates: end: 20050101

REACTIONS (3)
  - FACIAL BONES FRACTURE [None]
  - FALL [None]
  - SYNCOPE [None]
